FAERS Safety Report 9877106 (Version 2)
Quarter: 2014Q1

REPORT INFORMATION
  Report Type: Report from Study
  Country: JP (occurrence: JP)
  Receive Date: 20140206
  Receipt Date: 20140312
  Transmission Date: 20141002
  Serious: Yes (Hospitalization)
  Sender: FDA-Public Use
  Company Number: JP-JNJFOC-20140201534

PATIENT
  Age: 70 Year
  Sex: Female
  Weight: 53 kg

DRUGS (10)
  1. SIMPONI [Suspect]
     Indication: RHEUMATOID ARTHRITIS
     Route: 058
     Dates: start: 20130620, end: 20130620
  2. SIMPONI [Suspect]
     Indication: RHEUMATOID ARTHRITIS
     Route: 058
     Dates: start: 20130523, end: 20130523
  3. RHEUMATREX [Suspect]
     Indication: RHEUMATOID ARTHRITIS
     Route: 048
     Dates: end: 20130502
  4. RHEUMATREX [Suspect]
     Indication: RHEUMATOID ARTHRITIS
     Route: 048
     Dates: start: 20130502
  5. PREDNISOLONE [Concomitant]
     Indication: RHEUMATOID ARTHRITIS
     Route: 048
     Dates: end: 20130705
  6. CLINORIL [Concomitant]
     Indication: RHEUMATOID ARTHRITIS
     Route: 048
     Dates: end: 20130705
  7. MEVALOTIN [Concomitant]
     Indication: DYSLIPIDAEMIA
     Route: 048
  8. TAGAMET [Concomitant]
     Indication: PROPHYLAXIS
     Route: 065
  9. DORNER [Concomitant]
     Indication: SKIN ULCER
     Route: 048
  10. ANPLAG [Concomitant]
     Indication: SKIN ULCER
     Route: 048

REACTIONS (1)
  - Pneumocystis jirovecii pneumonia [Recovered/Resolved]
